FAERS Safety Report 5543732-4 (Version None)
Quarter: 2007Q4

REPORT INFORMATION
  Report Type: 
  Country: None (occurrence: None)
  Receive Date: 20071206
  Receipt Date: 20071120
  Transmission Date: 20080405
  Serious: Yes (Other)
  Sender: FDA-Public Use
  Company Number: CTI_00917_2007

PATIENT
  Sex: Male
  Weight: 97.0698 kg

DRUGS (9)
  1. ZYFLO [Suspect]
     Indication: ASTHMA
     Dosage: (600 MG QID ORAL)
     Route: 048
     Dates: start: 20070622, end: 20070724
  2. ALBUTEROL SULFATE [Concomitant]
  3. ZYRTEC [Concomitant]
  4. LISINOPRIL [Concomitant]
  5. FLONASE [Concomitant]
  6. SODIUM CHLORIDE 0.9% [Concomitant]
  7. QVAR 40 [Concomitant]
  8. SYMBICORT [Concomitant]
  9. SINGULAIR [Concomitant]

REACTIONS (8)
  - ALANINE AMINOTRANSFERASE INCREASED [None]
  - ASPARTATE AMINOTRANSFERASE INCREASED [None]
  - BLOOD ALKALINE PHOSPHATASE INCREASED [None]
  - BLOOD BILIRUBIN INCREASED [None]
  - EOSINOPHIL PERCENTAGE INCREASED [None]
  - FATIGUE [None]
  - FEELING ABNORMAL [None]
  - SERUM FERRITIN INCREASED [None]
